FAERS Safety Report 21782208 (Version 1)
Quarter: 2022Q4

REPORT INFORMATION
  Report Type: Report from Study
  Country: CN (occurrence: CN)
  Receive Date: 20221227
  Receipt Date: 20221227
  Transmission Date: 20230113
  Serious: Yes (Other)
  Sender: FDA-Public Use
  Company Number: CN-Accord-293383

PATIENT
  Age: 86 Year
  Sex: Male

DRUGS (3)
  1. CARBIDOPA\LEVODOPA [Suspect]
     Active Substance: CARBIDOPA\LEVODOPA
     Indication: COVID-19 immunisation
  2. PIMAVANSERIN [Suspect]
     Active Substance: PIMAVANSERIN
     Indication: COVID-19 immunisation
  3. PREDNISONE [Suspect]
     Active Substance: PREDNISONE
     Indication: COVID-19 immunisation

REACTIONS (21)
  - Abnormal behaviour [Unknown]
  - Aspiration [Unknown]
  - Asthenia [Unknown]
  - Bronchitis [Unknown]
  - Cough [Unknown]
  - Decreased appetite [Unknown]
  - Dehydration [Unknown]
  - Delusion [Unknown]
  - Drug ineffective [Unknown]
  - Dysphagia [Unknown]
  - General physical health deterioration [Unknown]
  - Hallucination [Unknown]
  - Infection [Unknown]
  - Medical device site infection [Unknown]
  - Mental impairment [Unknown]
  - Mental status changes [Unknown]
  - Peripheral swelling [Unknown]
  - Prescribed underdose [Unknown]
  - Sepsis [Unknown]
  - Unresponsive to stimuli [Unknown]
  - Urinary tract infection [Unknown]
